FAERS Safety Report 17305972 (Version 1)
Quarter: 2020Q1

REPORT INFORMATION
  Report Type: Spontaneous
  Country: US (occurrence: US)
  Receive Date: 20200106
  Receipt Date: 20200106
  Transmission Date: 20200409
  Serious: No
  Sender: FDA-Public Use
  Company Number: None

PATIENT
  Sex: Female

DRUGS (9)
  1. TIGECYCLINE 50 MG APOTEX [Suspect]
     Active Substance: TIGECYCLINE
     Indication: CYSTIC FIBROSIS
     Route: 042
     Dates: start: 20191220
  2. APIXABAN [Concomitant]
     Active Substance: APIXABAN
  3. CHOLECALCIFEROL [Concomitant]
     Active Substance: CHOLECALCIFEROL
  4. AZTREONAM. [Concomitant]
     Active Substance: AZTREONAM
  5. BUPROPION. [Concomitant]
     Active Substance: BUPROPION
  6. DOCUSATE SODIUM. [Concomitant]
     Active Substance: DOCUSATE SODIUM
  7. CIPROFLOXACIN. [Concomitant]
     Active Substance: CIPROFLOXACIN
  8. VITAMIN D [Concomitant]
     Active Substance: VITAMIN D NOS
  9. CETIRIZINE [Concomitant]
     Active Substance: CETIRIZINE HYDROCHLORIDE

REACTIONS (1)
  - Rash [None]
